FAERS Safety Report 7593469-5 (Version None)
Quarter: 2011Q3

REPORT INFORMATION
  Report Type: 
  Country: None (occurrence: None)
  Receive Date: 20110706
  Receipt Date: 20110629
  Transmission Date: 20111222
  Serious: Yes (Hospitalization, Other)
  Sender: FDA-Public Use
  Company Number: US-PFIZER INC-2010115852

PATIENT
  Sex: Female

DRUGS (6)
  1. BETASERON [Suspect]
     Dosage: 8 MIU, QOD (EVERY OTHER DAY)
     Route: 058
     Dates: start: 20050901
  2. POLYGAM S/D [Suspect]
     Dosage: UNK
     Route: 065
     Dates: start: 20110531, end: 20110605
  3. BETASERON [Suspect]
     Indication: MULTIPLE SCLEROSIS
     Dosage: 8 MIU, QOD (EVERY OTHER DAY)
     Route: 058
     Dates: start: 20030701
  4. SOLU-MEDROL [Suspect]
     Indication: MULTIPLE SCLEROSIS
     Dosage: UNK
     Route: 042
  5. INDERAL [Concomitant]
     Indication: HYPERTENSION
     Dosage: UNK
  6. BETASERON [Suspect]
     Dosage: 8 MIU, DAILY DOSE
     Route: 058
     Dates: start: 20040709, end: 20040819

REACTIONS (4)
  - VOMITING [None]
  - DEHYDRATION [None]
  - MENSTRUAL DISORDER [None]
  - MIGRAINE [None]
